FAERS Safety Report 8367276-X (Version None)
Quarter: 2012Q1

REPORT INFORMATION
  Report Type: 
  Country: None (occurrence: None)
  Receive Date: 20120323
  Receipt Date: 20110816
  Transmission Date: 20120608
  Serious: Yes (Hospitalization)
  Sender: FDA-Public Use
  Company Number: 163-21880-11072600

PATIENT
  Age: 73 Year
  Sex: Male
  Weight: 74.8435 kg

DRUGS (2)
  1. REVLIMID [Suspect]
     Indication: MULTIPLE MYELOMA
     Dosage: 15 MG, DAILY X21 DAYLY THEN 7 DAYS OFF, PO,15 MG, DAILY X21 DAYS THEN 7 DAYS OFF, PO
     Route: 048
     Dates: start: 20110421, end: 20110705
  2. REVLIMID [Suspect]
     Indication: MULTIPLE MYELOMA
     Dosage: 15 MG, DAILY X21 DAYLY THEN 7 DAYS OFF, PO,15 MG, DAILY X21 DAYS THEN 7 DAYS OFF, PO
     Route: 048
     Dates: start: 20090629

REACTIONS (1)
  - DEEP VEIN THROMBOSIS [None]
